FAERS Safety Report 4385943-X (Version None)
Quarter: 2004Q2

REPORT INFORMATION
  Report Type: 
  Country: None (occurrence: None)
  Receive Date: 20040607
  Receipt Date: 20040614
  Transmission Date: 20050107
  Serious: Yes (Other)
  Sender: FDA-Public Use
  Company Number: 356221

PATIENT
  Sex: 0

DRUGS (2)
  1. ACCUTANE [Suspect]
     Dosage: ORAL
     Dates: start: 20020926, end: 20030215
  2. ORAL CONTRACEPTIVE PILL [Concomitant]

REACTIONS (2)
  - NO ADVERSE EFFECT [None]
  - PREGNANCY [None]
